FAERS Safety Report 23418966 (Version 1)
Quarter: 2024Q1

REPORT INFORMATION
  Report Type: Spontaneous
  Country: US (occurrence: None)
  Receive Date: 20240118
  Receipt Date: 20240118
  Transmission Date: 20240410
  Serious: Yes (Other)
  Sender: FDA-Public Use
  Company Number: None

PATIENT
  Age: 58 Year
  Sex: Female
  Weight: 59.4 kg

DRUGS (7)
  1. .DELTA.9-TETRAHYDROCANNABINOL\HERBALS [Suspect]
     Active Substance: .DELTA.9-TETRAHYDROCANNABINOL\HERBALS
     Indication: Anxiety
     Dosage: OTHER QUANTITY : 1 GUMMY;?FREQUENCY : DAILY;?
     Route: 048
     Dates: start: 20240115, end: 20240115
  2. E[INVALID](estradiol) [Concomitant]
  3. MIRALAX [Concomitant]
     Active Substance: POLYETHYLENE GLYCOL 3350
  4. CHIA SEED [Concomitant]
  5. MAGNESIUM [Concomitant]
     Active Substance: MAGNESIUM
  6. PROBIOTICS NOS [Concomitant]
     Active Substance: PROBIOTICS NOS
  7. calcium gummies with vitamin D [Concomitant]

REACTIONS (4)
  - Hallucination, visual [None]
  - Heart rate increased [None]
  - Blood pressure increased [None]
  - Paralysis [None]

NARRATIVE: CASE EVENT DATE: 20240115
